FAERS Safety Report 24164120 (Version 1)
Quarter: 2024Q3

REPORT INFORMATION
  Report Type: Report from Study
  Country: US (occurrence: US)
  Receive Date: 20240801
  Receipt Date: 20240801
  Transmission Date: 20241016
  Serious: Yes (Other)
  Sender: ABBVIE
  Company Number: US-ABBVIE-5315594

PATIENT
  Age: 73 Year
  Sex: Female
  Weight: 54.431 kg

DRUGS (21)
  1. VENCLEXTA [Suspect]
     Active Substance: VENETOCLAX
     Indication: Acute myeloid leukaemia
     Dosage: TAKE 2 TABLET(S) BY MOUTH? ON DAYS 1-7 OF EACH? 28 DAY CHEMO CYCLE? TAKE WITH FOOD
     Route: 048
     Dates: start: 20230731, end: 20240525
  2. VENCLEXTA [Suspect]
     Active Substance: VENETOCLAX
     Indication: Acute myeloid leukaemia
     Dosage: TAKE 1 TABLET BY MOUTH ON? DAY 1,
     Route: 048
  3. VENCLEXTA [Suspect]
     Active Substance: VENETOCLAX
     Indication: Acute myeloid leukaemia
     Dosage: THEN TAKE 4 TABLET(S) BY? MOUTH DAILY ON DAY 1-14? EVERY 28 DAY(S) . TAKE? WITH FOOD
     Route: 048
  4. VENCLEXTA [Suspect]
     Active Substance: VENETOCLAX
     Indication: Acute myeloid leukaemia
     Dosage: HEN TAKE 4 TABLET(S) BY? MOUTH ON DAY(S) 3-14
     Route: 048
  5. VENCLEXTA [Suspect]
     Active Substance: VENETOCLAX
     Indication: Acute myeloid leukaemia
     Route: 048
  6. VENCLEXTA [Suspect]
     Active Substance: VENETOCLAX
     Indication: Acute myeloid leukaemia
     Dosage: THEN TAKE 2 TABLET(S) BY? MOUTH ON DAY 2,
     Route: 048
  7. VENCLEXTA [Suspect]
     Active Substance: VENETOCLAX
     Indication: Acute myeloid leukaemia
     Dosage: TABLETS COME AS 100 MG? TABLETS - PATIENT TAKES 2? TABLETS DAILY FOR FIVE?DAYS AND THREE WEEK BREAK
     Route: 048
  8. VENCLEXTA [Suspect]
     Active Substance: VENETOCLAX
     Indication: Acute myeloid leukaemia
     Dosage: DAY 2 TAKE 200 MG PO QD
     Route: 048
  9. VENCLEXTA [Suspect]
     Active Substance: VENETOCLAX
     Indication: Acute myeloid leukaemia
     Dosage: DAY 3-14: TAKE PO QD
     Route: 048
  10. VENCLEXTA [Suspect]
     Active Substance: VENETOCLAX
     Indication: Acute myeloid leukaemia
     Dosage: HEN 14 DAYS OFF , THEN TAKE? 400 MG PO QD DAYS 1-14? EVERY 28 DAYS
     Route: 048
  11. VENCLEXTA [Suspect]
     Active Substance: VENETOCLAX
     Indication: Acute myeloid leukaemia
     Dosage: 100 MG , DAY 1: TAKE 100? MG PO QD,
     Route: 048
  12. VENCLEXTA [Suspect]
     Active Substance: VENETOCLAX
     Indication: Acute myeloid leukaemia
     Dosage: 100 MG , DAY 1: TAKE 100
     Route: 048
  13. AZACITIDINE [Concomitant]
     Active Substance: AZACITIDINE
     Indication: Acute myeloid leukaemia
     Dosage: ONCE DAILY FOR? FIVE DAYS AND THREE WEEK? BREAK PERIOD PRIOR TO?RESUMING THERAPY
     Route: 042
     Dates: start: 20230627, end: 20240626
  14. LIOTHYRONINE [Concomitant]
     Active Substance: LIOTHYRONINE
     Indication: Thyroid disorder
     Dosage: TABLETS? COME AS 5 MG TABLETS -? PATIENT TAKES 2 TABLETS? EVERY DAY
     Route: 048
     Dates: start: 2015
  15. LEVOTHYROXINE [Concomitant]
     Active Substance: LEVOTHYROXINE\LEVOTHYROXINE SODIUM
     Indication: Thyroid disorder
     Dosage: 50  G TABLET
     Dates: start: 1985
  16. FLUOXETINE [Concomitant]
     Active Substance: FLUOXETINE HYDROCHLORIDE
     Indication: Depression
     Route: 048
  17. BACLOFEN [Concomitant]
     Active Substance: BACLOFEN
     Indication: Product used for unknown indication
  18. ALENDRONATE [Concomitant]
     Active Substance: ALENDRONATE SODIUM
     Indication: Product used for unknown indication
  19. ATORVASTATIN [Concomitant]
     Active Substance: ATORVASTATIN
     Indication: Product used for unknown indication
  20. PANTOPRAZOLE [Concomitant]
     Active Substance: PANTOPRAZOLE
     Indication: Product used for unknown indication
  21. VITAMIN D3 [Concomitant]
     Active Substance: CHOLECALCIFEROL
     Indication: Product used for unknown indication
     Dosage: 2000IU

REACTIONS (7)
  - Transfusion [Not Recovered/Not Resolved]
  - Feeling abnormal [Unknown]
  - Off label use [Unknown]
  - Brain fog [Unknown]
  - Haemoglobin decreased [Not Recovered/Not Resolved]
  - Platelet count decreased [Not Recovered/Not Resolved]
  - Platelet transfusion [Not Recovered/Not Resolved]

NARRATIVE: CASE EVENT DATE: 20240723
